FAERS Safety Report 21834908 (Version 1)
Quarter: 2023Q1

REPORT INFORMATION
  Report Type: Report from Study
  Country: CA (occurrence: CA)
  Receive Date: 20230109
  Receipt Date: 20230109
  Transmission Date: 20230417
  Serious: Yes (Other)
  Sender: FDA-Public Use
  Company Number: CA-ABBVIE-4260191

PATIENT
  Sex: Female

DRUGS (1)
  1. HUMIRA [Suspect]
     Active Substance: ADALIMUMAB
     Indication: Rheumatoid arthritis
     Route: 058
     Dates: start: 20110101

REACTIONS (5)
  - Venous occlusion [Unknown]
  - Hypoaesthesia [Unknown]
  - Epicondylitis [Unknown]
  - Paraesthesia [Unknown]
  - Pulse absent [Unknown]
